FAERS Safety Report 4950406-7 (Version None)
Quarter: 2006Q1

REPORT INFORMATION
  Report Type: 
  Country: None (occurrence: None)
  Receive Date: 20060315
  Receipt Date: 20060303
  Transmission Date: 20060701
  Serious: Yes (Disabling, Other)
  Sender: FDA-Public Use
  Company Number: 2006032055

PATIENT
  Age: 73 Year
  Sex: Female

DRUGS (5)
  1. LYRICA [Suspect]
     Indication: FIBROMYALGIA
     Dosage: 75 MG (25 MG, 3 IN 1 D) ORAL
     Route: 048
     Dates: start: 20060101
  2. ATORVASTATIN CALCIUM [Concomitant]
  3. DILTIAZEM HYDROCHLORIDE [Concomitant]
  4. ACETAMINOPHEN [Concomitant]
  5. ACETYLSALICYLIC ACID SRT [Concomitant]

REACTIONS (3)
  - CONTUSION [None]
  - INFLAMMATION [None]
  - PAIN [None]
